FAERS Safety Report 4506166-7 (Version None)
Quarter: 2004Q4

REPORT INFORMATION
  Report Type: 
  Country: None (occurrence: None)
  Receive Date: 20041025
  Receipt Date: 20040507
  Transmission Date: 20050328
  Serious: Yes (Life-Threatening)
  Sender: FDA-Public Use
  Company Number: US-JNJFOC-20040402161

PATIENT
  Age: 77 Year
  Sex: Female
  Weight: 77.5651 kg

DRUGS (3)
  1. REMICADE [Suspect]
     Indication: RHEUMATOID ARTHRITIS
     Dosage: 8 MG/KG, INTRAVENOUS
     Route: 042
     Dates: start: 20031210, end: 20031210
  2. REMICADE [Suspect]
     Indication: RHEUMATOID ARTHRITIS
     Dosage: 8 MG/KG, INTRAVENOUS
     Route: 042
     Dates: start: 20011012
  3. METHOTREXATE [Concomitant]

REACTIONS (1)
  - LYMPHOMA [None]
